FAERS Safety Report 8477770-9 (Version None)
Quarter: 2012Q2

REPORT INFORMATION
  Report Type: 
  Country: None (occurrence: None)
  Receive Date: 20120629
  Receipt Date: 20111031
  Transmission Date: 20120825
  Serious: No
  Sender: FDA-Public Use
  Company Number: US-GLAXOSMITHKLINE-A0951769A

PATIENT
  Sex: Male

DRUGS (4)
  1. ADVAIR DISKUS 100/50 [Concomitant]
     Route: 055
  2. CODEINE COUGH SYRUP [Concomitant]
  3. ZITHROMAX [Concomitant]
  4. VENTOLIN [Suspect]
     Indication: WHEEZING
     Dosage: 1PUFF UNKNOWN
     Route: 055
     Dates: start: 20111031

REACTIONS (1)
  - MUSCULOSKELETAL PAIN [None]
